FAERS Safety Report 7446570-0 (Version None)
Quarter: 2011Q2

REPORT INFORMATION
  Report Type: 
  Country: None (occurrence: None)
  Receive Date: 20110429
  Receipt Date: 20110425
  Transmission Date: 20111010
  Serious: Yes (Other)
  Sender: FDA-Public Use
  Company Number: US-MERCK-1104USA01056

PATIENT
  Age: 60 Year
  Sex: Female

DRUGS (3)
  1. COLACE [Concomitant]
     Route: 065
  2. SINEMET CR [Suspect]
     Indication: PARKINSON'S DISEASE
     Route: 048
     Dates: start: 20010401
  3. SINEMET [Suspect]
     Indication: PARKINSON'S DISEASE
     Route: 048
     Dates: start: 20010401

REACTIONS (6)
  - UTERINE CANCER [None]
  - PLEURISY [None]
  - THROMBOSIS [None]
  - BREAST CANCER [None]
  - PNEUMONIA [None]
  - NAUSEA [None]
